FAERS Safety Report 18962354 (Version 1)
Quarter: 2021Q1

REPORT INFORMATION
  Report Type: Other
  Country: GR (occurrence: GR)
  Receive Date: 20210303
  Receipt Date: 20210303
  Transmission Date: 20210420
  Serious: Yes (Death, Hospitalization, Other)
  Sender: FDA-Public Use
  Company Number: GR-INNOGENIX, LLC-2107515

PATIENT
  Age: 79 Year
  Sex: Female

DRUGS (4)
  1. TYGECYCLINE [Suspect]
     Active Substance: TIGECYCLINE
     Route: 042
  2. VANCOMYCIN HYDROCHLORIDE. [Suspect]
     Active Substance: VANCOMYCIN HYDROCHLORIDE
     Route: 065
  3. MEROPENEM. [Suspect]
     Active Substance: MEROPENEM
     Route: 042
  4. METRONIDAZOLE. [Suspect]
     Active Substance: METRONIDAZOLE
     Indication: CLOSTRIDIUM DIFFICILE INFECTION
     Route: 042

REACTIONS (2)
  - Septic shock [Fatal]
  - Drug ineffective [Fatal]
